FAERS Safety Report 22393194 (Version 1)
Quarter: 2023Q2

REPORT INFORMATION
  Report Type: Spontaneous
  Country: US (occurrence: US)
  Receive Date: 20230601
  Receipt Date: 20230601
  Transmission Date: 20230721
  Serious: No
  Sender: FDA-Public Use
  Company Number: US-MYLANLABS-2023M1054042

PATIENT
  Sex: Female

DRUGS (3)
  1. FENTANYL TRANSDERMAL SYSTEM [Suspect]
     Active Substance: FENTANYL
     Indication: Fibromyalgia
     Dosage: 25 MICROGRAM, Q3D (EVERY 3DAYS)
     Route: 062
     Dates: start: 20211103
  2. FENTANYL TRANSDERMAL SYSTEM [Suspect]
     Active Substance: FENTANYL
     Dosage: 25 MICROGRAM, Q3D (EVERY 3DAYS)
     Route: 062
  3. FENTANYL TRANSDERMAL SYSTEM [Suspect]
     Active Substance: FENTANYL
     Dosage: 25 MICROGRAM, Q3D (EVERY 3DAYS)
     Route: 062

REACTIONS (2)
  - Product dispensing error [Unknown]
  - Product lot number issue [Unknown]

NARRATIVE: CASE EVENT DATE: 20230510
